FAERS Safety Report 13927749 (Version 1)
Quarter: 2017Q3

REPORT INFORMATION
  Report Type: Spontaneous
  Country: US (occurrence: US)
  Receive Date: 20170901
  Receipt Date: 20170901
  Transmission Date: 20171127
  Serious: Yes (Other)
  Sender: FDA-Public Use
  Company Number: US-LPDUSPRD-20171204

PATIENT

DRUGS (4)
  1. IRINOTECAN [Suspect]
     Active Substance: IRINOTECAN
     Dosage: UNKNOWN
     Route: 065
  2. LEUCOVORIN CALCIUM INJECTION (0517-8605-25) [Suspect]
     Active Substance: LEUCOVORIN CALCIUM
     Dosage: UNKNOWN
     Route: 065
  3. OXALIPLATIN. [Suspect]
     Active Substance: OXALIPLATIN
     Dosage: UNKNOWN
     Route: 065
  4. FLUOROURACIL. [Suspect]
     Active Substance: FLUOROURACIL
     Dosage: UNKNOWN
     Route: 065

REACTIONS (1)
  - Neuropathy peripheral [Unknown]
